FAERS Safety Report 6464063-4 (Version None)
Quarter: 2009Q4

REPORT INFORMATION
  Report Type: 
  Country: None (occurrence: None)
  Receive Date: 20091130
  Receipt Date: 20091130
  Transmission Date: 20100525
  Serious: Yes (Life-Threatening)
  Sender: FDA-Public Use
  Company Number: None

PATIENT
  Age: 84 Year
  Sex: Female
  Weight: 82.6 kg

DRUGS (1)
  1. WARFARIN SODIUM [Suspect]
     Dosage: PO
     Route: 048

REACTIONS (3)
  - HAEMORRHAGE [None]
  - SKIN LACERATION [None]
  - SUBARACHNOID HAEMORRHAGE [None]
